FAERS Safety Report 8477381-5 (Version None)
Quarter: 2012Q2

REPORT INFORMATION
  Report Type: 
  Country: None (occurrence: None)
  Receive Date: 20120629
  Receipt Date: 20120622
  Transmission Date: 20120825
  Serious: Yes (Other)
  Sender: FDA-Public Use
  Company Number: JP-FOUGERA-2012FO001226

PATIENT
  Age: 33 Year
  Sex: Male

DRUGS (2)
  1. HYDROCORTISONE ACETATE [Suspect]
     Indication: PRODUCT USED FOR UNKNOWN INDICATION
     Dates: start: 19951201, end: 20030801
  2. PANDEL [Suspect]
     Indication: PRODUCT USED FOR UNKNOWN INDICATION
     Dates: start: 19930701

REACTIONS (1)
  - GLAUCOMA [None]
